FAERS Safety Report 8025715-8 (Version None)
Quarter: 2012Q1

REPORT INFORMATION
  Report Type: 
  Country: None (occurrence: None)
  Receive Date: 20120105
  Receipt Date: 20110111
  Transmission Date: 20120608
  Serious: No
  Sender: FDA-Public Use
  Company Number: US-ABBOTT-11P-163-0696964-00

PATIENT
  Sex: Female
  Weight: 68.1 kg

DRUGS (2)
  1. VIVELLE [Suspect]
     Indication: HORMONE REPLACEMENT THERAPY
     Dosage: 1 IN 3 D, PATCH, APPLIED TO SKIN
  2. SYNTHROID [Suspect]
     Indication: HYPOTHYROIDISM
     Dosage: DAILY IN MORNING
     Route: 048
     Dates: start: 20101119

REACTIONS (3)
  - WRONG TECHNIQUE IN DRUG USAGE PROCESS [None]
  - FATIGUE [None]
  - ABDOMINAL DISCOMFORT [None]
